FAERS Safety Report 23790714 (Version 2)
Quarter: 2024Q4

REPORT INFORMATION
  Report Type: Spontaneous
  Country: CA (occurrence: CA)
  Receive Date: 20240427
  Receipt Date: 20241023
  Transmission Date: 20250114
  Serious: Yes (Other)
  Sender: AUROBINDO
  Company Number: CA-AUROBINDO-AUR-APL-2024-018952

PATIENT
  Age: 56 Year
  Sex: Female

DRUGS (1)
  1. CEPHALEXIN [Suspect]
     Active Substance: CEPHALEXIN
     Indication: Urinary tract infection
     Dosage: 500 MILLIGRAM, FOUR TIMES/DAY
     Route: 048

REACTIONS (5)
  - Elsberg syndrome [Recovering/Resolving]
  - Urinary retention [Recovering/Resolving]
  - Constipation [Recovering/Resolving]
  - Paraesthesia [Recovering/Resolving]
  - Protein total increased [Recovering/Resolving]
